FAERS Safety Report 20709180 (Version 1)
Quarter: 2022Q2

REPORT INFORMATION
  Report Type: Spontaneous
  Country: US (occurrence: None)
  Receive Date: 20220413
  Receipt Date: 20220413
  Transmission Date: 20220720
  Serious: Yes (Other)
  Sender: FDA-Public Use
  Company Number: None

PATIENT
  Age: 46 Year
  Sex: Female

DRUGS (1)
  1. PRASTERONE [Suspect]
     Active Substance: PRASTERONE
     Indication: Nutritional supplementation
     Dosage: FREQUENCY : DAILY;?
     Route: 048
     Dates: start: 20220330, end: 20220330

REACTIONS (2)
  - Heart rate increased [None]
  - Dyspnoea [None]

NARRATIVE: CASE EVENT DATE: 20220330
